FAERS Safety Report 5731307-3 (Version None)
Quarter: 2008Q2

REPORT INFORMATION
  Report Type: 
  Country: None (occurrence: None)
  Receive Date: 20080505
  Receipt Date: 20080428
  Transmission Date: 20081010
  Serious: Yes (Other)
  Sender: FDA-Public Use
  Company Number: CHPA2008US07419

PATIENT
  Age: 62 Year
  Sex: Female
  Weight: 57.3 kg

DRUGS (2)
  1. MAALOX UNKNOWN (NCH)(UNKNOWN) UNKNOWN [Suspect]
     Dosage: ORAL
     Route: 048
     Dates: start: 20071001
  2. PREVACID [Suspect]
     Indication: GASTROOESOPHAGEAL REFLUX DISEASE
     Dosage: 30 MG, ORAL
     Route: 048
     Dates: start: 20070801

REACTIONS (4)
  - CONDITION AGGRAVATED [None]
  - DYSPNOEA [None]
  - FAECES DISCOLOURED [None]
  - GASTROOESOPHAGEAL REFLUX DISEASE [None]
